FAERS Safety Report 5727200-2 (Version None)
Quarter: 2008Q2

REPORT INFORMATION
  Report Type: 
  Country: None (occurrence: None)
  Receive Date: 20080505
  Receipt Date: 20080429
  Transmission Date: 20081010
  Serious: Yes (Death)
  Sender: FDA-Public Use
  Company Number: ID-BAYER-200815969GPV

PATIENT
  Age: 58 Year
  Sex: Male

DRUGS (1)
  1. TRASYLOL [Suspect]
     Indication: POST PROCEDURAL HAEMORRHAGE
     Route: 065

REACTIONS (3)
  - DEATH [None]
  - MULTI-ORGAN FAILURE [None]
  - SEPSIS [None]
